FAERS Safety Report 6772450-X (Version None)
Quarter: 2010Q2

REPORT INFORMATION
  Report Type: 
  Country: None (occurrence: None)
  Receive Date: 20100614
  Receipt Date: 20100309
  Transmission Date: 20101027
  Serious: Yes (Life-Threatening, Hospitalization)
  Sender: FDA-Public Use
  Company Number: DSU-2010-01084

PATIENT
  Age: 52 Year
  Sex: Female
  Weight: 90.2658 kg

DRUGS (9)
  1. BENICAR [Suspect]
     Indication: HYPERTENSION
     Dosage: PER ORAL
     Route: 048
  2. LYRICA [Suspect]
     Dosage: 300 MG (100 MG, TID), PER ORAL
     Route: 048
     Dates: start: 20090625
  3. XANAX [Suspect]
     Indication: ANXIETY
     Dosage: PER ORAL
     Route: 048
  4. SAVELLA [Suspect]
     Indication: PAIN
     Dosage: PER ORAL
     Route: 048
  5. DIOVAN [Concomitant]
  6. EFFEXOR (VENLAFAXINE HYDROCHLORIDE) (VENLAFAXINE HYDROCHLORIDE) [Concomitant]
  7. TRAMADOL HCL [Concomitant]
  8. VYTORIN (SIMVASTATIN, EZETIMIBE) (SIMVASTATIN, EZETIMIBE) [Concomitant]
  9. ASPIRIN [Concomitant]

REACTIONS (1)
  - SUICIDE ATTEMPT [None]
